FAERS Safety Report 16752616 (Version 2)
Quarter: 2021Q3

REPORT INFORMATION
  Report Type: Spontaneous
  Country: IT (occurrence: IT)
  Receive Date: 20190828
  Receipt Date: 20210709
  Transmission Date: 20211014
  Serious: Yes (Other)
  Sender: FDA-Public Use
  Company Number: PHHY2019IT197555

PATIENT
  Age: 43 Year
  Sex: Male
  Weight: 70 kg

DRUGS (1)
  1. DESFERAL [Suspect]
     Active Substance: DEFEROXAMINE MESYLATE
     Indication: PRODUCT USED FOR UNKNOWN INDICATION
     Dosage: 2500 MG (5 DAYS A WEEK)
     Route: 065

REACTIONS (4)
  - Liver iron concentration abnormal [Unknown]
  - Serum ferritin decreased [Unknown]
  - Urine iron increased [Unknown]
  - Product availability issue [Unknown]
